FAERS Safety Report 14113154 (Version 1)
Quarter: 2017Q4

REPORT INFORMATION
  Report Type: Spontaneous
  Country: US (occurrence: None)
  Receive Date: 20171020
  Receipt Date: 20171020
  Transmission Date: 20180321
  Serious: Yes (Hospitalization)
  Sender: FDA-Public Use
  Company Number: None

PATIENT
  Age: 54 Year
  Sex: Male

DRUGS (8)
  1. DIPHEN/ATROP [Concomitant]
     Active Substance: ATROPINE SULFATE\DIPHENOXYLATE
  2. HYDROXYZ HCL [Concomitant]
     Active Substance: HYDROXYZINE HYDROCHLORIDE
  3. LISINOPRIL. [Concomitant]
     Active Substance: LISINOPRIL
  4. MORPHINE [Concomitant]
     Active Substance: MORPHINE
  5. XARELTO [Concomitant]
     Active Substance: RIVAROXABAN
  6. OPIUM. [Concomitant]
     Active Substance: OPIUM
  7. LONSURF [Suspect]
     Active Substance: TIPIRACIL HYDROCHLORIDE\TRIFLURIDINE
     Indication: RECTAL CANCER
     Dosage: 5 TABLETS BID D1-5 AND 8-12 ORAL
     Route: 048
     Dates: start: 20170914
  8. GABAPENTIN. [Concomitant]
     Active Substance: GABAPENTIN

REACTIONS (2)
  - Arthropathy [None]
  - Fall [None]

NARRATIVE: CASE EVENT DATE: 20171018
